FAERS Safety Report 23925709 (Version 1)
Quarter: 2024Q2

REPORT INFORMATION
  Report Type: Spontaneous
  Country: US (occurrence: US)
  Receive Date: 20240531
  Receipt Date: 20240531
  Transmission Date: 20240716
  Serious: Yes (Death, Hospitalization, Other)
  Sender: FDA-Public Use
  Company Number: US-VANTIVE-2024VAN017222

PATIENT
  Sex: Male

DRUGS (3)
  1. EXTRANEAL [Suspect]
     Active Substance: CALCIUM CHLORIDE\ICODEXTRIN\MAGNESIUM CHLORIDE\SODIUM CHLORIDE\SODIUM LACTATE
     Route: 033
  2. ELIQUIS [Concomitant]
     Active Substance: APIXABAN
     Indication: Atrial fibrillation
     Route: 065
  3. METOPROLOL [Concomitant]
     Active Substance: METOPROLOL
     Indication: Atrial fibrillation
     Route: 065

REACTIONS (12)
  - Cardiac arrest [Fatal]
  - Metabolic encephalopathy [Unknown]
  - Respiratory failure [Unknown]
  - Hypoventilation [Unknown]
  - Fall [Unknown]
  - Pneumonia aspiration [Unknown]
  - Atrial fibrillation [Unknown]
  - Fracture displacement [Unknown]
  - Somnolence [Unknown]
  - Agonal respiration [Unknown]
  - Muscle spasms [Unknown]
  - Muscular weakness [Unknown]
